FAERS Safety Report 7753948-4 (Version None)
Quarter: 2011Q3

REPORT INFORMATION
  Report Type: 
  Country: None (occurrence: None)
  Receive Date: 20110915
  Receipt Date: 20110912
  Transmission Date: 20111222
  Serious: Yes (Other)
  Sender: FDA-Public Use
  Company Number: JP-PFIZER INC-2011214350

PATIENT
  Age: 10 Year
  Sex: Female

DRUGS (2)
  1. ATARAX [Suspect]
     Dosage: UNK
     Route: 048
     Dates: start: 20110801
  2. PHENOBARBITAL TAB [Suspect]
     Dosage: UNK
     Route: 048
     Dates: start: 20110801

REACTIONS (1)
  - STEVENS-JOHNSON SYNDROME [None]
